FAERS Safety Report 7689204-2 (Version None)
Quarter: 2011Q3

REPORT INFORMATION
  Report Type: 
  Country: None (occurrence: None)
  Receive Date: 20110817
  Receipt Date: 20110815
  Transmission Date: 20111222
  Serious: Yes (Death, Life-Threatening, Hospitalization, Other)
  Sender: FDA-Public Use
  Company Number: JP-BAYER-2011-063526

PATIENT
  Age: 81 Year
  Sex: Female
  Weight: 45 kg

DRUGS (45)
  1. CAMOSTATE [Concomitant]
     Dosage: DAILY DOSE 300 MG
     Route: 048
     Dates: start: 20101116, end: 20110118
  2. SOLON [Concomitant]
     Dosage: DAILY DOSE 50 MG
     Route: 048
     Dates: start: 20100101, end: 20100626
  3. MAGNESOL [Concomitant]
     Dosage: DAILY DOSE 63.6 NOT APPL.
     Route: 042
     Dates: start: 20110611, end: 20110621
  4. SOLDEM 1 [Concomitant]
     Dosage: DAILY DOSE 500 ML
     Route: 042
     Dates: start: 20110611, end: 20110611
  5. GLUCOSE [Concomitant]
     Dosage: DAILY DOSE 16 ML
     Route: 042
     Dates: start: 20110621
  6. SORAFENIB (RAF KINASE INHIBITOR) [Suspect]
     Dosage: 400 MG DAILY
     Route: 048
     Dates: start: 20101025, end: 20101124
  7. CLARITIN [Concomitant]
     Dosage: DAILY DOSE 10 MG
     Route: 048
     Dates: start: 20110101, end: 20110611
  8. LORFENAMIN [Concomitant]
     Dosage: DAILY DOSE 60 MG
     Route: 048
     Dates: start: 20110610, end: 20110610
  9. SODIUM BICARBONATE [Concomitant]
     Dosage: DAILY DOSE 250 ML
     Route: 042
     Dates: start: 20110611, end: 20110611
  10. AMIODARONE HCL [Concomitant]
     Dosage: DAILY DOSE 300 MG
     Route: 042
     Dates: start: 20110615, end: 20110615
  11. NEO-MINOPHAGEN C [Concomitant]
     Indication: HEPATIC FUNCTION ABNORMAL
     Dosage: DAILY DOSE 20 ML
     Route: 042
     Dates: start: 20110625, end: 20110627
  12. SORAFENIB (RAF KINASE INHIBITOR) [Suspect]
     Dosage: 200 MG DAILY
     Route: 048
     Dates: start: 20110106, end: 20110530
  13. BIOFERMIN [Concomitant]
     Dosage: DAILY DOSE 3 G
     Route: 048
     Dates: start: 20101130, end: 20110611
  14. PROMAC [POLAPREZINC] [Concomitant]
     Dosage: DAILY DOSE 150 MG
     Route: 048
     Dates: start: 20101130, end: 20110611
  15. WHITE PETROLEUM [Concomitant]
     Dosage: UNK
     Route: 061
     Dates: start: 20110612
  16. RINACETO [Concomitant]
     Dosage: DAILY DOSE 500 ML
     Route: 042
     Dates: start: 20110610, end: 20110612
  17. GLUCOSE [Concomitant]
     Dosage: DAILY DOSE 250 ML
     Route: 042
     Dates: start: 20110618, end: 20110619
  18. SITAGLIPTIN PHOSPHATE [Concomitant]
     Dosage: DAILY DOSE 50 MG
     Route: 048
     Dates: start: 20100101, end: 20110611
  19. HEPAN ED [Concomitant]
     Dosage: DAILY DOSE 80 G
     Route: 048
     Dates: start: 20110412, end: 20110611
  20. LACTEC [Concomitant]
     Dosage: DAILY DOSE 625 ML
     Route: 042
     Dates: start: 20110608, end: 20110611
  21. TERUFIS [Concomitant]
     Indication: HEPATIC FUNCTION ABNORMAL
     Dosage: DAILY DOSE 400 ML
     Route: 042
     Dates: start: 20110621
  22. KANAMYCIN [Concomitant]
     Dosage: DAILY DOSE 750 MG
     Route: 048
     Dates: start: 20101130, end: 20110622
  23. XYLOCAINE [Concomitant]
     Dosage: DAILY DOSE 10 ML
     Route: 042
     Dates: start: 20110611, end: 20110611
  24. PREDOPA [Concomitant]
     Indication: CARDIAC FAILURE
     Dosage: DAILY DOSE 500 MG
     Route: 042
     Dates: start: 20100611, end: 20110622
  25. PREDOPA [Concomitant]
     Dosage: DAILY DOSE 500 MG
     Route: 042
     Dates: start: 20100611, end: 20110622
  26. GLUCOSE [Concomitant]
     Dosage: DAILY DOSE 500 ML
     Route: 042
     Dates: start: 20110620
  27. MULTIVITAMIN ADDITIVE [Concomitant]
     Dosage: DAILY DOSE 1 DF
     Route: 042
     Dates: start: 20110621
  28. NORVASC [Concomitant]
     Dosage: DAILY DOSE 5 MG
     Route: 048
     Dates: start: 20100101, end: 20110611
  29. BONOTEO [Concomitant]
     Dosage: DAILY DOSE 1 MG
     Route: 048
     Dates: start: 20100101, end: 20110611
  30. BISOLVON [Concomitant]
     Dosage: UNK
     Route: 055
     Dates: start: 20110630
  31. OMEPRAZOLE [Concomitant]
     Dosage: DAILY DOSE 24 MG
     Route: 042
     Dates: start: 20110611
  32. SOLUTIONS FOR PARENTERAL NUTRITION [Concomitant]
     Dosage: DAILY DOSE 965.5 ML
     Route: 042
     Dates: start: 20110612, end: 20110620
  33. GLUCOSE [Concomitant]
     Dosage: DAILY DOSE 250 ML
     Route: 042
     Dates: start: 20110622, end: 20110623
  34. SORAFENIB (RAF KINASE INHIBITOR) [Suspect]
     Dosage: 200 MG DAILY
     Route: 048
     Dates: start: 20110608, end: 20110608
  35. PIARLE TAKATA [Concomitant]
     Dosage: DAILY DOSE 20 ML
     Route: 048
     Dates: start: 20101116, end: 20101129
  36. GOODMIN [Concomitant]
     Dosage: DAILY DOSE .25 MG
     Route: 048
     Dates: start: 20110610, end: 20110610
  37. SHINBIT [Concomitant]
     Dosage: DAILY DOSE 50 MG
     Route: 042
     Dates: start: 20110610, end: 20110610
  38. INDERAL [Concomitant]
     Dosage: DAILY DOSE 2 MG
     Route: 042
     Dates: start: 20110611, end: 20110611
  39. SOLUTIONS FOR PARENTERAL NUTRITION [Concomitant]
     Dosage: DAILY DOSE 965.5 ML
     Route: 042
     Dates: start: 20110612, end: 20110620
  40. SORAFENIB (RAF KINASE INHIBITOR) [Suspect]
     Indication: HEPATIC NEOPLASM MALIGNANT
     Dosage: 200 MG DAILY
     Route: 048
     Dates: start: 20101019, end: 20101024
  41. GASLON N [Concomitant]
     Dosage: DAILY DOSE 2 MG
     Route: 048
     Dates: start: 20110101, end: 20110611
  42. PYDOXAL [Concomitant]
     Dosage: DAILY DOSE 60 MG
     Route: 048
     Dates: start: 20101019, end: 20110106
  43. POTASSIUM CHLORIDE [Concomitant]
     Dosage: DAILY DOSE 217 ML
     Route: 042
     Dates: start: 20110610, end: 20110621
  44. NOVOLIN R [Concomitant]
     Dosage: UNK
     Route: 042
     Dates: start: 20110610
  45. VOLVIX [Concomitant]
     Dosage: DAILY DOSE 2 ML
     Route: 042
     Dates: start: 20110613, end: 20110620

REACTIONS (16)
  - HAEMOGLOBIN DECREASED [None]
  - CARDIAC FAILURE [None]
  - MALAISE [None]
  - DISSEMINATED INTRAVASCULAR COAGULATION [None]
  - PYREXIA [None]
  - DIARRHOEA [None]
  - GENERALISED OEDEMA [None]
  - HEPATIC FUNCTION ABNORMAL [None]
  - HYPOALBUMINAEMIA [None]
  - DYSGEUSIA [None]
  - RENAL IMPAIRMENT [None]
  - CARDIO-RESPIRATORY ARREST [None]
  - PNEUMONIA [None]
  - DECREASED APPETITE [None]
  - VENTRICULAR FIBRILLATION [None]
  - HYPOKALAEMIA [None]
